FAERS Safety Report 26006765 (Version 1)
Quarter: 2025Q4

REPORT INFORMATION
  Report Type: Spontaneous
  Country: EU (occurrence: EU)
  Receive Date: 20251106
  Receipt Date: 20251106
  Transmission Date: 20260117
  Serious: Yes (Other)
  Sender: NOVO NORDISK
  Company Number: EU-NOVOPROD-1552872

PATIENT
  Age: 77 Year
  Sex: Female

DRUGS (2)
  1. WEGOVY [Suspect]
     Active Substance: SEMAGLUTIDE
     Dosage: UNK(DOSE INCREASED)
  2. WEGOVY [Suspect]
     Active Substance: SEMAGLUTIDE
     Indication: Product used for unknown indication
     Dosage: 9 CLICKS, THEN 18, AND THEN 36
     Dates: start: 202501

REACTIONS (8)
  - Cataract [Recovered/Resolved]
  - Cataract [Recovered/Resolved]
  - Increased appetite [Unknown]
  - Weight loss poor [Unknown]
  - Abdominal discomfort [Unknown]
  - Diarrhoea [Unknown]
  - Off label use [Unknown]
  - Off label use [Unknown]

NARRATIVE: CASE EVENT DATE: 20250101
